FAERS Safety Report 6084092-2 (Version None)
Quarter: 2009Q1

REPORT INFORMATION
  Report Type: 
  Country: None (occurrence: None)
  Receive Date: 20090204
  Receipt Date: 20080819
  Transmission Date: 20090719
  Serious: Yes (Hospitalization)
  Sender: FDA-Public Use
  Company Number: 278606

PATIENT
  Age: 77 Year
  Sex: Female

DRUGS (4)
  1. NOVOLOG [Suspect]
     Indication: INSULIN-REQUIRING TYPE 2 DIABETES MELLITUS
     Dosage: 2 LU, QD (BEFORE DINNER), SUBCUTANEOUS
     Route: 058
     Dates: start: 20080812, end: 20080812
  2. LEVEMIR [Concomitant]
  3. LISINOPRIL [Concomitant]
  4. CRESTOR [Concomitant]

REACTIONS (1)
  - HYPOGLYCAEMIC UNCONSCIOUSNESS [None]
